FAERS Safety Report 20139213 (Version 1)
Quarter: 2021Q4

REPORT INFORMATION
  Report Type: Spontaneous
  Country: US (occurrence: None)
  Receive Date: 20211201
  Receipt Date: 20211201
  Transmission Date: 20220303
  Serious: Yes (Hospitalization)
  Sender: FDA-Public Use
  Company Number: None

PATIENT
  Age: 42 Year
  Sex: Female
  Weight: 122 kg

DRUGS (1)
  1. REGEN-COV [Suspect]
     Active Substance: CASIRIVIMAB\IMDEVIMAB
     Indication: COVID-19
     Dosage: OTHER FREQUENCY : ONE-TIME DOSE;?
     Route: 041
     Dates: start: 20211123, end: 20211123

REACTIONS (4)
  - Weight bearing difficulty [None]
  - Hyperglycaemia [None]
  - Peroneal nerve palsy [None]
  - Nerve compression [None]

NARRATIVE: CASE EVENT DATE: 20211124
